FAERS Safety Report 24928264 (Version 2)
Quarter: 2025Q2

REPORT INFORMATION
  Report Type: Spontaneous
  Country: GB (occurrence: GB)
  Receive Date: 20250205
  Receipt Date: 20250422
  Transmission Date: 20250717
  Serious: Yes (Death, Other)
  Sender: TEVA
  Company Number: GB-AMAROX PHARMA-AMR2025GB00281

PATIENT

DRUGS (1)
  1. MONTELUKAST [Suspect]
     Active Substance: MONTELUKAST
     Indication: Product used for unknown indication
     Route: 065
     Dates: start: 2013

REACTIONS (2)
  - Completed suicide [Fatal]
  - Death [Fatal]
